FAERS Safety Report 12802151 (Version 1)
Quarter: 2016Q4

REPORT INFORMATION
  Report Type: Spontaneous
  Country: US (occurrence: US)
  Receive Date: 20161003
  Receipt Date: 20161003
  Transmission Date: 20170207
  Serious: No
  Sender: FDA-Public Use
  Company Number: US-JAZZ-2016-US-012211

PATIENT
  Age: 28 Year
  Sex: Female

DRUGS (23)
  1. XYREM [Suspect]
     Active Substance: SODIUM OXYBATE
     Indication: CATAPLEXY
     Dosage: DOSE ADJUSTMENTS
     Route: 048
     Dates: start: 201203, end: 201501
  2. SINGULAIR [Concomitant]
     Active Substance: MONTELUKAST SODIUM
  3. VITAMIN D3 [Concomitant]
     Active Substance: CHOLECALCIFEROL
  4. TRETINOIN. [Concomitant]
     Active Substance: TRETINOIN
  5. XYREM [Suspect]
     Active Substance: SODIUM OXYBATE
     Dosage: 4.5 G, QD
     Route: 048
     Dates: start: 201501
  6. SEROQUEL [Concomitant]
     Active Substance: QUETIAPINE FUMARATE
  7. LUPRON [Concomitant]
     Active Substance: LEUPROLIDE ACETATE
  8. METFORMIN HCL [Concomitant]
     Active Substance: METFORMIN HYDROCHLORIDE
  9. PROVIGIL [Concomitant]
     Active Substance: MODAFINIL
  10. PROBIOTIC [Concomitant]
     Active Substance: PROBIOTICS NOS
  11. XYREM [Suspect]
     Active Substance: SODIUM OXYBATE
     Indication: NARCOLEPSY
     Dosage: 2.25 G, BID
     Route: 048
     Dates: start: 201203, end: 201203
  12. OMNARIS [Concomitant]
     Active Substance: CICLESONIDE
  13. DOXYCYCLINE HYCLATE. [Concomitant]
     Active Substance: DOXYCYCLINE HYCLATE
  14. ALLEGRA ALLERGY [Concomitant]
     Active Substance: FEXOFENADINE HYDROCHLORIDE
  15. ACZONE [Concomitant]
     Active Substance: DAPSONE
  16. LAMOTRIGINE. [Concomitant]
     Active Substance: LAMOTRIGINE
  17. CELEXA [Concomitant]
     Active Substance: CITALOPRAM HYDROBROMIDE
  18. WELLBUTRIN XL [Concomitant]
     Active Substance: BUPROPION HYDROCHLORIDE
  19. ADVAIR HFA [Concomitant]
     Active Substance: FLUTICASONE PROPIONATE\SALMETEROL XINAFOATE
  20. XOPENEX [Concomitant]
     Active Substance: LEVALBUTEROL HYDROCHLORIDE
  21. DEXILANT DR [Concomitant]
  22. MODAFINIL. [Concomitant]
     Active Substance: MODAFINIL
  23. SYNTHROID [Concomitant]
     Active Substance: LEVOTHYROXINE SODIUM

REACTIONS (1)
  - Sinusitis [Unknown]

NARRATIVE: CASE EVENT DATE: 201605
